FAERS Safety Report 25572067 (Version 1)
Quarter: 2025Q3

REPORT INFORMATION
  Report Type: Spontaneous
  Country: CN (occurrence: CN)
  Receive Date: 20250717
  Receipt Date: 20250717
  Transmission Date: 20251020
  Serious: Yes (Hospitalization)
  Sender: PFIZER
  Company Number: CN-PFIZER INC-PV202500084437

PATIENT
  Age: 13 Year
  Sex: Male
  Weight: 68.3 kg

DRUGS (2)
  1. METHOTREXATE SODIUM [Suspect]
     Active Substance: METHOTREXATE SODIUM
     Indication: Acute leukaemia
     Dosage: 5.4 G, 1X/DAY
     Route: 041
     Dates: start: 20250119, end: 20250119
  2. DEXTROSE [Concomitant]
     Active Substance: DEXTROSE MONOHYDRATE
     Indication: Vehicle solution use
     Dosage: 500 ML, 1X/DAY
     Route: 041
     Dates: start: 20250119, end: 20250119

REACTIONS (2)
  - Dizziness [Recovering/Resolving]
  - Vasospasm [Recovering/Resolving]

NARRATIVE: CASE EVENT DATE: 20250121
